FAERS Safety Report 5580084-8 (Version None)
Quarter: 2007Q4

REPORT INFORMATION
  Report Type: 
  Country: None (occurrence: None)
  Receive Date: 20071228
  Receipt Date: 20071217
  Transmission Date: 20080405
  Serious: Yes (Hospitalization)
  Sender: FDA-Public Use
  Company Number: 2007US003041

PATIENT
  Age: 10 Year
  Sex: Female

DRUGS (5)
  1. PROGRAF [Suspect]
     Indication: RENAL TRANSPLANT
     Dosage: 8 MG, UID/QD, ORAL
     Route: 048
     Dates: start: 20071019, end: 20071206
  2. MYFORTIC (MYCOPHENOLATE SODIUM) [Concomitant]
  3. PREDNISOLONE ACETATE [Concomitant]
  4. DACLIZUMAB (DACLIZUMAB) [Concomitant]
  5. PROGRAF [Suspect]

REACTIONS (3)
  - IMMUNOSUPPRESSANT DRUG LEVEL DECREASED [None]
  - KIDNEY TRANSPLANT REJECTION [None]
  - THROMBOSIS [None]
